FAERS Safety Report 7504675-X (Version None)
Quarter: 2011Q2

REPORT INFORMATION
  Report Type: 
  Country: None (occurrence: None)
  Receive Date: 20110525
  Receipt Date: 20110407
  Transmission Date: 20111010
  Serious: Yes (Other)
  Sender: FDA-Public Use
  Company Number: US-AMGEN-USASP2011018696

PATIENT
  Age: 47 Year
  Sex: Female

DRUGS (3)
  1. CORTICOSTEROIDS [Concomitant]
  2. VINCRISTINE [Concomitant]
  3. NPLATE [Suspect]
     Indication: IDIOPATHIC THROMBOCYTOPENIC PURPURA
     Dosage: 2 A?G/KG, UNK
     Dates: start: 20081008, end: 20090129

REACTIONS (1)
  - DRUG INEFFECTIVE [None]
